FAERS Safety Report 23194528 (Version 2)
Quarter: 2024Q1

REPORT INFORMATION
  Report Type: Spontaneous
  Country: GB (occurrence: GB)
  Receive Date: 20231117
  Receipt Date: 20240212
  Transmission Date: 20240410
  Serious: Yes (Death, Disabling, Other)
  Sender: FDA-Public Use
  Company Number: GB-Korea IPSEN-2023-25495

PATIENT
  Age: 23 Year
  Sex: Male
  Weight: 65 kg

DRUGS (8)
  1. CABOMETYX [Suspect]
     Active Substance: CABOZANTINIB S-MALATE
     Indication: Osteosarcoma metastatic
     Dosage: 40 MG, QD
     Route: 048
     Dates: start: 20230224
  2. CABOMETYX [Suspect]
     Active Substance: CABOZANTINIB S-MALATE
     Indication: Off label use
     Dosage: 60 MG, QD
     Route: 048
     Dates: start: 20230601, end: 20231012
  3. COCODAMOL [Concomitant]
     Active Substance: ACETAMINOPHEN\CODEINE PHOSPHATE
     Indication: Pain
     Dosage: 30/500MG
     Route: 048
     Dates: start: 20230926
  4. MORPHINE SULFATE [Concomitant]
     Active Substance: MORPHINE SULFATE
     Indication: Pain
     Dosage: 5-10MG, ON
     Route: 048
     Dates: start: 20231009
  5. PREGABALIN [Concomitant]
     Active Substance: PREGABALIN
     Indication: Pain
     Dosage: 150MG BD (STARTED AS 75MG BD)
     Route: 048
     Dates: start: 20230703
  6. PREGABALIN [Concomitant]
     Active Substance: PREGABALIN
     Dosage: 150MG BD (STARTED AS 75MG BD)
     Route: 048
  7. AMITRIPTYLINE [Concomitant]
     Active Substance: AMITRIPTYLINE
     Indication: Pain
     Dosage: 10MG OD PO
     Route: 048
     Dates: start: 20230316
  8. LEVOTHYROXINE [Concomitant]
     Active Substance: LEVOTHYROXINE\LEVOTHYROXINE SODIUM
     Indication: Hypothyroidism
     Dosage: 50 UG, QD
     Route: 048
     Dates: start: 20230831

REACTIONS (3)
  - Cardiac dysfunction [Not Recovered/Not Resolved]
  - Death [Fatal]
  - Off label use [Unknown]

NARRATIVE: CASE EVENT DATE: 20230224
